FAERS Safety Report 5369133-X (Version None)
Quarter: 2007Q2

REPORT INFORMATION
  Report Type: 
  Country: None (occurrence: None)
  Receive Date: 20070625
  Receipt Date: 20070208
  Transmission Date: 20071010
  Serious: No
  Sender: FDA-Public Use
  Company Number: US-ASTRAZENECA-2007UW02682

PATIENT
  Age: 35 Year
  Sex: Male
  Weight: 99.8 kg

DRUGS (5)
  1. CRESTOR [Suspect]
     Indication: BLOOD CHOLESTEROL INCREASED
     Route: 048
  2. LOPID [Concomitant]
  3. IBUPROFEN [Concomitant]
  4. ASCORBIC ACID [Concomitant]
  5. PRILOSEC [Concomitant]

REACTIONS (4)
  - DECREASED APPETITE [None]
  - DEPRESSION [None]
  - SUICIDAL IDEATION [None]
  - URINE ANALYSIS ABNORMAL [None]
